FAERS Safety Report 8234814-7 (Version None)
Quarter: 2012Q1

REPORT INFORMATION
  Report Type: 
  Country: None (occurrence: None)
  Receive Date: 20120326
  Receipt Date: 20120312
  Transmission Date: 20120608
  Serious: Yes (Death, Other)
  Sender: FDA-Public Use
  Company Number: ES-ROCHE-1048235

PATIENT

DRUGS (4)
  1. MABTHERA [Suspect]
     Indication: LUPUS NEPHRITIS
  2. METHYLPREDNISOLONE [Suspect]
     Indication: LUPUS NEPHRITIS
  3. MYCOPHENOLATE MOFETIL (CELLCEPT) [Suspect]
     Indication: LUPUS NEPHRITIS
  4. CYCLOPHOSPHAMIDE [Suspect]
     Indication: LUPUS NEPHRITIS

REACTIONS (13)
  - PULMONARY EMBOLISM [None]
  - SEPTIC SHOCK [None]
  - URINARY TRACT INFECTION [None]
  - NECROTISING FASCIITIS [None]
  - CEREBROVASCULAR ACCIDENT [None]
  - POSTERIOR REVERSIBLE ENCEPHALOPATHY SYNDROME [None]
  - PANCREATITIS [None]
  - CYTOMEGALOVIRUS VIRAEMIA [None]
  - MENINGITIS PNEUMOCOCCAL [None]
  - CEREBRAL HAEMORRHAGE [None]
  - HERPES ZOSTER [None]
  - PNEUMONIA [None]
  - ARTHRITIS BACTERIAL [None]
